FAERS Safety Report 12337289 (Version 1)
Quarter: 2016Q2

REPORT INFORMATION
  Report Type: Spontaneous
  Country: US (occurrence: US)
  Receive Date: 20160505
  Receipt Date: 20160505
  Transmission Date: 20160815
  Serious: No
  Sender: FDA-Public Use
  Company Number: US-PFIZER INC-2016210833

PATIENT
  Age: 23 Year
  Sex: Male

DRUGS (1)
  1. LYRICA [Suspect]
     Active Substance: PREGABALIN
     Dosage: 50 MG OR SOMETHING LIKE THAT LOWER DOSE

REACTIONS (13)
  - Disorientation [Unknown]
  - Tremor [Unknown]
  - Hallucination [Unknown]
  - Chest pain [Unknown]
  - Hot flush [Unknown]
  - Pollakiuria [Unknown]
  - Musculoskeletal pain [Unknown]
  - Musculoskeletal stiffness [Unknown]
  - Chest discomfort [Unknown]
  - Feeling abnormal [Unknown]
  - Feeling cold [Unknown]
  - Heart rate increased [Unknown]
  - Paraesthesia [Unknown]
